FAERS Safety Report 4408378-X (Version None)
Quarter: 2004Q3

REPORT INFORMATION
  Report Type: 
  Country: None (occurrence: None)
  Receive Date: 20040726
  Receipt Date: 20040726
  Transmission Date: 20050211
  Serious: Yes (Hospitalization)
  Sender: FDA-Public Use
  Company Number: None

PATIENT
  Age: 73 Year
  Sex: Female
  Weight: 92.7152 kg

DRUGS (2)
  1. VINORELBINE TARTRATE [Suspect]
     Indication: CERVIX CARCINOMA
     Dosage: 30MG/M2 TOTAL OF 50MGS
     Dates: start: 20040610
  2. CISPLATIN [Suspect]
     Dosage: 50MG/M2  TOTAL OF 8 MG
     Dates: start: 20040702

REACTIONS (3)
  - BLOOD CREATININE ABNORMAL [None]
  - OEDEMA PERIPHERAL [None]
  - REFUSAL OF TREATMENT BY PATIENT [None]
